FAERS Safety Report 7056612-2 (Version None)
Quarter: 2010Q4

REPORT INFORMATION
  Report Type: 
  Country: None (occurrence: None)
  Receive Date: 20101018
  Receipt Date: 20101001
  Transmission Date: 20110411
  Serious: Yes (Hospitalization)
  Sender: FDA-Public Use
  Company Number: 2010004402

PATIENT
  Age: 60 Year
  Sex: Male
  Weight: 37 kg

DRUGS (14)
  1. ERLOTINIB HYDROCHLORIDE [Suspect]
     Indication: LUNG ADENOCARCINOMA
     Dosage: (150 MG, QD), ORAL
     Route: 048
     Dates: start: 20090401
  2. TAMSULOSIN HCL [Suspect]
     Indication: PRODUCT USED FOR UNKNOWN INDICATION
     Dosage: (0.2 MG, QD), ORAL
     Route: 048
  3. PYRIDOXINE HYDROCHLORIDE (PYRIDOXINE HYDROCHLORIDE) [Concomitant]
  4. MECOBALAMIN (MECOBALAMIN) [Concomitant]
  5. FAMOTIDINE [Concomitant]
  6. ZOLPIDEM TARTRATE [Concomitant]
  7. MUCODYNE (CARBOCISTEINE) [Concomitant]
  8. MUCOSOLVAN (AMBROXOL HYDROCHLORIDE) [Concomitant]
  9. ASVERIN (TIPEPIDINE HIBENZATE) [Concomitant]
  10. CODEINE PHOSPHATE (CODEINE PHOSPHATE) [Concomitant]
  11. ZOMETA [Concomitant]
  12. MS CONTIN [Concomitant]
  13. PANTOSIN (PANTETHINE) [Concomitant]
  14. MAGNESIUM OXIDE (MAGNESIUM OXIDE) [Concomitant]

REACTIONS (5)
  - CHOLECYSTITIS ACUTE [None]
  - DIARRHOEA [None]
  - DISEASE PROGRESSION [None]
  - HYPERPHOSPHATASAEMIA [None]
  - PNEUMOTHORAX [None]
